FAERS Safety Report 20523531 (Version 1)
Quarter: 2022Q1

REPORT INFORMATION
  Report Type: Spontaneous
  Country: GB (occurrence: GB)
  Receive Date: 20220228
  Receipt Date: 20220228
  Transmission Date: 20220423
  Serious: Yes (Other)
  Sender: FDA-Public Use
  Company Number: GB-MHRA-TPP17715609C575809YC1644501435025

PATIENT
  Age: 64 Year
  Sex: Female
  Weight: 58 kg

DRUGS (6)
  1. ATORVASTATIN [Suspect]
     Active Substance: ATORVASTATIN
     Indication: Product used for unknown indication
     Dosage: 20 MILLIGRAM, QD, TAKE ONE DAILY
     Route: 065
     Dates: start: 20211110, end: 20220119
  2. ATORVASTATIN [Suspect]
     Active Substance: ATORVASTATIN
     Indication: Product used for unknown indication
     Dosage: 20 MILLIGRAM, UNK, TABLET
     Route: 065
     Dates: start: 20220209
  3. FYBOGEL [Concomitant]
     Active Substance: HERBALS\PLANTAGO OVATA SEED
     Indication: Product used for unknown indication
     Dosage: 1 DOSAGE FORM, BID, ONE TWICE A DAY,2 DOSE
     Route: 065
     Dates: start: 20211213, end: 20211228
  4. LATANOPROST [Concomitant]
     Active Substance: LATANOPROST
     Indication: Product used for unknown indication
     Dosage: 1 DOSAGE FORM, QD, ONE DROP ONCE DAILY
     Route: 065
     Dates: start: 20210724
  5. SIMVASTATIN [Concomitant]
     Active Substance: SIMVASTATIN
     Indication: Product used for unknown indication
     Dosage: 1 DOSAGE FORM, QD, TAKE ONE EACH NIGHT
     Route: 065
     Dates: start: 20211228
  6. TERBINAFINE [Concomitant]
     Active Substance: TERBINAFINE
     Indication: Product used for unknown indication
     Dosage: 1 DOSAGE FORM, QD, TAKE ONE DAILY
     Route: 065
     Dates: start: 20210907

REACTIONS (1)
  - Adverse drug reaction [Recovered/Resolved]

NARRATIVE: CASE EVENT DATE: 20220210
